FAERS Safety Report 4664172-6 (Version None)
Quarter: 2005Q2

REPORT INFORMATION
  Report Type: 
  Country: None (occurrence: None)
  Receive Date: 20050516
  Receipt Date: 20050516
  Transmission Date: 20051028
  Serious: No
  Sender: FDA-Public Use
  Company Number: None

PATIENT
  Age: 57 Year
  Sex: Female
  Weight: 49.4421 kg

DRUGS (6)
  1. ALENDRONATE SODIUM [Suspect]
     Indication: OSTEOPOROSIS
     Dosage: 1  7 DAYS ORAL
     Route: 048
     Dates: start: 20041204, end: 20050129
  2. PEPCID [Concomitant]
  3. OMEPRAZOLE [Concomitant]
  4. PEPCID [Concomitant]
  5. PROTONIX [Concomitant]
  6. ANTACID LIQUID [Concomitant]

REACTIONS (4)
  - DYSPEPSIA [None]
  - FLATULENCE [None]
  - INSOMNIA [None]
  - STOMACH DISCOMFORT [None]
